FAERS Safety Report 7051870-2 (Version None)
Quarter: 2010Q4

REPORT INFORMATION
  Report Type: 
  Country: None (occurrence: None)
  Receive Date: 20101019
  Receipt Date: 20101011
  Transmission Date: 20110411
  Serious: Yes (Hospitalization)
  Sender: FDA-Public Use
  Company Number: ZA-ROCHE-730001

PATIENT
  Sex: Male
  Weight: 158.5 kg

DRUGS (9)
  1. BEVACIZUMAB [Suspect]
     Route: 042
     Dates: start: 20090527, end: 20100915
  2. INTERFERON ALFA [Suspect]
     Dosage: DOSE: 9 MIU, FREQUENCY: 3 X WEEKLY
     Route: 058
     Dates: start: 20090527, end: 20101004
  3. CHELA-FER [Concomitant]
     Indication: ANAEMIA
     Dates: start: 20100908
  4. URBANOL [Concomitant]
     Indication: ANXIETY
     Dates: start: 20100908
  5. OMEPRAZOLE [Concomitant]
     Indication: GASTRITIS
     Dates: start: 20100707
  6. TORASEMIDE [Concomitant]
     Indication: HYPERTENSION
     Dates: start: 20100624
  7. PLENISH-K [Concomitant]
     Dates: start: 20100621
  8. SPIRONOLACTONE [Concomitant]
     Indication: HYPERTENSION
     Dates: start: 20100617
  9. GLUCOPHAGE [Concomitant]
     Dates: start: 20070501

REACTIONS (1)
  - ASCITES [None]
